FAERS Safety Report 5194682-7 (Version None)
Quarter: 2006Q4

REPORT INFORMATION
  Report Type: 
  Country: None (occurrence: None)
  Receive Date: 20061229
  Receipt Date: 20061221
  Transmission Date: 20070319
  Serious: Yes (Hospitalization)
  Sender: FDA-Public Use
  Company Number: PHEH2006US15483

PATIENT

DRUGS (1)
  1. TOBI [Suspect]

REACTIONS (2)
  - MYDRIASIS [None]
  - PUPILLARY LIGHT REFLEX TESTS ABNORMAL [None]
